FAERS Safety Report 12506000 (Version 3)
Quarter: 2016Q3

REPORT INFORMATION
  Report Type: Spontaneous
  Country: GB (occurrence: GB)
  Receive Date: 20160628
  Receipt Date: 20160826
  Transmission Date: 20161109
  Serious: Yes (Other)
  Sender: FDA-Public Use
  Company Number: GB-MYLANLABS-2016M1023175

PATIENT

DRUGS (5)
  1. DOVONEX [Suspect]
     Active Substance: CALCIPOTRIENE
     Indication: PRURITUS
     Dosage: UNK
     Route: 065
  2. DOVOBET [Suspect]
     Active Substance: BETAMETHASONE\CALCIPOTRIENE
     Indication: PRURITUS
     Dosage: UNK
     Route: 065
  3. KETOPINE [Suspect]
     Active Substance: KETOCONAZOLE
     Dosage: UNK
     Route: 065
     Dates: start: 2012
  4. VITAMIN D3 [Concomitant]
     Active Substance: CHOLECALCIFEROL
     Indication: VITAMIN D DEFICIENCY
     Dosage: UNK UNK, QD
     Dates: start: 201511
  5. QUETIAPINE. [Suspect]
     Active Substance: QUETIAPINE
     Indication: BIPOLAR I DISORDER
     Dosage: 600 MG, UNK (MODIFIED RELEASE)
     Route: 048
     Dates: start: 20120201

REACTIONS (4)
  - Guttate psoriasis [Not Recovered/Not Resolved]
  - Blood cholesterol increased [Unknown]
  - Psoriasis [Unknown]
  - Vitamin D decreased [Unknown]

NARRATIVE: CASE EVENT DATE: 20120404
